FAERS Safety Report 21889926 (Version 1)
Quarter: 2023Q1

REPORT INFORMATION
  Report Type: Spontaneous
  Country: US (occurrence: None)
  Receive Date: 20230119
  Receipt Date: 20230119
  Transmission Date: 20230417
  Serious: Yes (Hospitalization)
  Sender: FDA-Public Use
  Company Number: None

PATIENT
  Age: 67 Year
  Sex: Female
  Weight: 71.2 kg

DRUGS (3)
  1. BELATACEPT [Suspect]
     Active Substance: BELATACEPT
     Indication: Renal transplant
     Dosage: OTHER FREQUENCY : EVERY 28 DAYS;?
     Route: 042
     Dates: start: 20221123
  2. BELATACEPT [Suspect]
     Active Substance: BELATACEPT
     Indication: Transplant recipient
  3. PAXLOVID [Suspect]
     Active Substance: NIRMATRELVIR\RITONAVIR
     Indication: COVID-19 treatment

REACTIONS (5)
  - Small intestinal obstruction [None]
  - COVID-19 [None]
  - Vomiting [None]
  - Atrial fibrillation [None]
  - Hypertension [None]

NARRATIVE: CASE EVENT DATE: 20221226
